FAERS Safety Report 5281877-7 (Version None)
Quarter: 2007Q1

REPORT INFORMATION
  Report Type: 
  Country: None (occurrence: None)
  Receive Date: 20070330
  Receipt Date: 20070312
  Transmission Date: 20070707
  Serious: Yes (Hospitalization)
  Sender: FDA-Public Use
  Company Number: US-SANOFI-SYNTHELABO-A03200603045

PATIENT
  Sex: Female

DRUGS (7)
  1. AMBIEN [Suspect]
     Indication: INSOMNIA
     Route: 048
     Dates: start: 20060101, end: 20060601
  2. IBUPROFEN [Concomitant]
     Route: 048
  3. LEVOXYL [Concomitant]
     Dosage: UNK
     Route: 048
  4. HYDROCODONE [Concomitant]
     Dosage: UNK
     Route: 048
  5. PROMETHAZINE [Concomitant]
     Dosage: UNK
     Route: 048
  6. NEURONTIN [Concomitant]
     Dosage: UNK
     Route: 048
  7. LEXAPRO [Concomitant]
     Dosage: UNK
     Route: 048

REACTIONS (3)
  - AMNESIA [None]
  - IMPAIRED DRIVING ABILITY [None]
  - SLEEP WALKING [None]
